FAERS Safety Report 21206101 (Version 1)
Quarter: 2022Q3

REPORT INFORMATION
  Report Type: Spontaneous
  Country: US (occurrence: None)
  Receive Date: 20220811
  Receipt Date: 20220811
  Transmission Date: 20221027
  Serious: Yes (Other)
  Sender: FDA-Public Use
  Company Number: None

PATIENT
  Age: 33 Year
  Sex: Male
  Weight: 65.25 kg

DRUGS (3)
  1. DEXTROAMPHET SACCHARAT, AMPHET ASPARTATE, DEXTROAMPHET SULFATE AND AMP [Suspect]
     Active Substance: AMPHETAMINE ASPARTATE\AMPHETAMINE SULFATE\DEXTROAMPHETAMINE SACCHARATE\DEXTROAMPHETAMINE SULFATE
     Dosage: OTHER QUANTITY : 1 TABLET(S);?FREQUENCY : TWICE A DAY;?
     Route: 048
     Dates: start: 20220811, end: 20220811
  2. adderall 10mg twice daily [Concomitant]
  3. IRON [Concomitant]
     Active Substance: IRON

REACTIONS (9)
  - Anxiety [None]
  - Decreased appetite [None]
  - Affective disorder [None]
  - Feeling jittery [None]
  - Headache [None]
  - Disturbance in attention [None]
  - Panic attack [None]
  - Intentional self-injury [None]
  - Drug ineffective [None]

NARRATIVE: CASE EVENT DATE: 20220811
